FAERS Safety Report 5514377-7 (Version None)
Quarter: 2007Q4

REPORT INFORMATION
  Report Type: 
  Country: None (occurrence: None)
  Receive Date: 20071113
  Receipt Date: 20070501
  Transmission Date: 20080405
  Serious: No
  Sender: FDA-Public Use
  Company Number: A0649492A

PATIENT
  Age: 83 Year
  Sex: Female

DRUGS (3)
  1. COREG [Suspect]
     Dosage: 12.5MG TWICE PER DAY
     Route: 048
     Dates: start: 20040101
  2. INSULIN [Concomitant]
  3. LASIX [Concomitant]

REACTIONS (4)
  - ANXIETY [None]
  - BURNING SENSATION [None]
  - DEPRESSION [None]
  - ERYTHEMA [None]
